FAERS Safety Report 5655457-5 (Version None)
Quarter: 2008Q1

REPORT INFORMATION
  Report Type: 
  Country: None (occurrence: None)
  Receive Date: 20080307
  Receipt Date: 20080226
  Transmission Date: 20080703
  Serious: Yes (Life-Threatening, Hospitalization, Other)
  Sender: FDA-Public Use
  Company Number: US-ELI_LILLY_AND_COMPANY-US200801002970

PATIENT
  Sex: Male

DRUGS (14)
  1. HUMALOG [Suspect]
     Route: 058
     Dates: start: 19940101
  2. HUMULIN R [Suspect]
  3. HUMULIN N [Suspect]
  4. IMURAN [Concomitant]
     Dosage: 25 MG, DAILY (1/D)
  5. NEORAL [Concomitant]
     Dosage: 75 MG, 2/D
  6. CALCITRIOL [Concomitant]
     Indication: HYPERTENSION
  7. NORVASC [Concomitant]
     Indication: HYPERTENSION
  8. ATENOLOL [Concomitant]
     Indication: HYPERTENSION
  9. CLONIDINE [Concomitant]
     Indication: HYPERTENSION
     Dosage: 0.1 MG, UNK
  10. CARDURA [Concomitant]
     Indication: HYPERTENSION
     Dosage: 10 MG, 2/D
  11. COZAAR [Concomitant]
     Indication: HYPERTENSION
     Dosage: 100 MG, DAILY (1/D)
  12. PREDNISONE TAB [Concomitant]
     Dosage: 5 MG, DAILY (1/D)
  13. XANAX [Concomitant]
     Indication: HYPERTENSION
     Dosage: 0.5 MG, 2/D
  14. REGLAN [Concomitant]
     Dosage: 10 MG, WITH MEALS

REACTIONS (13)
  - BLOOD CREATININE INCREASED [None]
  - BREATH SOUNDS ABNORMAL [None]
  - CHEST X-RAY ABNORMAL [None]
  - DYSPNOEA [None]
  - FATIGUE [None]
  - HYPERTENSION [None]
  - LARYNGEAL PAPILLOMA [None]
  - LUNG NEOPLASM MALIGNANT [None]
  - RENAL FAILURE [None]
  - RESPIRATORY ARREST [None]
  - RESTLESS LEGS SYNDROME [None]
  - SLEEP APNOEA SYNDROME [None]
  - TESTIS CANCER [None]
